FAERS Safety Report 24961904 (Version 1)
Quarter: 2025Q1

REPORT INFORMATION
  Report Type: Spontaneous
  Country: ES (occurrence: ES)
  Receive Date: 20250212
  Receipt Date: 20250212
  Transmission Date: 20250409
  Serious: Yes (Other)
  Sender: FRESENIUS KABI
  Company Number: ES-SEDANA MEDICAL AB-2024-SED-000021

PATIENT
  Sex: Male

DRUGS (2)
  1. PROPOFOL [Suspect]
     Active Substance: PROPOFOL
     Indication: Sedation
     Route: 042
  2. ISOFLURANE [Suspect]
     Active Substance: ISOFLURANE
     Indication: Sedation
     Route: 055

REACTIONS (2)
  - Seizure [Recovered/Resolved]
  - Hyperkalaemia [Recovered/Resolved]
